FAERS Safety Report 6199005-2 (Version None)
Quarter: 2009Q2

REPORT INFORMATION
  Report Type: 
  Country: None (occurrence: None)
  Receive Date: 20090522
  Receipt Date: 20090513
  Transmission Date: 20091009
  Serious: Yes (Hospitalization)
  Sender: FDA-Public Use
  Company Number: US-ELI_LILLY_AND_COMPANY-US200905003276

PATIENT
  Age: 31 Year
  Sex: Male

DRUGS (2)
  1. HUMULIN R [Suspect]
     Route: 058
     Dates: start: 20080401, end: 20090512
  2. INSULIN [Concomitant]

REACTIONS (2)
  - GLYCOSYLATED HAEMOGLOBIN INCREASED [None]
  - NODULE [None]
